FAERS Safety Report 16472238 (Version 2)
Quarter: 2019Q3

REPORT INFORMATION
  Report Type: Spontaneous
  Country: PT (occurrence: PT)
  Receive Date: 20190625
  Receipt Date: 20190708
  Transmission Date: 20191004
  Serious: Yes (Other)
  Sender: FDA-Public Use
  Company Number: PT-AUROBINDO-AUR-APL-2019-035878

PATIENT

DRUGS (2)
  1. MIRTAZAPINE. [Suspect]
     Active Substance: MIRTAZAPINE
     Indication: ADJUSTMENT DISORDER WITH ANXIETY
     Dosage: UP TO 30 MG/DAY
     Route: 065
  2. MIRTAZAPINE. [Suspect]
     Active Substance: MIRTAZAPINE
     Indication: ADJUSTMENT DISORDER WITH DEPRESSED MOOD
     Dosage: ONE WEEK AFTER THE 30 MG/DAY DOSE
     Route: 065

REACTIONS (8)
  - Insomnia [Recovered/Resolved]
  - Persecutory delusion [Recovered/Resolved]
  - Tachyphrenia [Recovered/Resolved]
  - Logorrhoea [Recovered/Resolved]
  - Dysphoria [Recovered/Resolved]
  - Mania [Recovered/Resolved]
  - Behaviour disorder [Recovered/Resolved]
  - Psychomotor hyperactivity [Recovered/Resolved]
